FAERS Safety Report 24672590 (Version 1)
Quarter: 2024Q4

REPORT INFORMATION
  Report Type: Spontaneous
  Country: US (occurrence: US)
  Receive Date: 20241127
  Receipt Date: 20241127
  Transmission Date: 20250114
  Serious: Yes (Death, Life-Threatening, Hospitalization)
  Sender: ASPIRO PHARMA
  Company Number: US-AMAROX PHARMA-ASP2024US04293

PATIENT
  Age: 10 Month
  Sex: Male

DRUGS (6)
  1. OLANZAPINE [Suspect]
     Active Substance: OLANZAPINE
     Indication: Delirium
     Dosage: PRN (AS NECESSARY)
     Route: 065
  2. ACETAMINOPHEN [Suspect]
     Active Substance: ACETAMINOPHEN
     Indication: Hyperthermia
     Dosage: PRN (AS NECESSARY)
     Route: 065
  3. LORAZEPAM [Concomitant]
     Active Substance: LORAZEPAM
     Indication: Product used for unknown indication
     Dosage: UNK
     Route: 065
  4. MORPHINE [Concomitant]
     Active Substance: MORPHINE
     Indication: Product used for unknown indication
     Dosage: UNK
     Route: 065
  5. MIDAZOLAM [Concomitant]
     Active Substance: MIDAZOLAM
     Indication: Product used for unknown indication
     Dosage: UNK
     Route: 065
  6. NICARDIPINE [Concomitant]
     Active Substance: NICARDIPINE
     Indication: Hypertension
     Dosage: UNK
     Route: 065

REACTIONS (16)
  - Shock [Fatal]
  - Lactic acidosis [Fatal]
  - Disseminated intravascular coagulation [Fatal]
  - Brain injury [Fatal]
  - Acute myocardial infarction [Fatal]
  - Brain hypoxia [Fatal]
  - Autonomic nervous system imbalance [Fatal]
  - Multiple organ dysfunction syndrome [Fatal]
  - Cerebral infarction [Fatal]
  - Generalised oedema [Fatal]
  - Agitation [Unknown]
  - Neuroleptic malignant syndrome [Fatal]
  - Acute kidney injury [Fatal]
  - Hepatic function abnormal [Fatal]
  - Therapy non-responder [Unknown]
  - Product use in unapproved indication [Unknown]
